FAERS Safety Report 11692333 (Version 1)
Quarter: 2015Q4

REPORT INFORMATION
  Report Type: Spontaneous
  Country: US (occurrence: US)
  Receive Date: 20151103
  Receipt Date: 20151103
  Transmission Date: 20160304
  Serious: No
  Sender: FDA-Public Use
  Company Number: US-009507513-1511USA000912

PATIENT
  Age: 30 Year
  Sex: Female
  Weight: 73.92 kg

DRUGS (1)
  1. IMPLANON [Suspect]
     Active Substance: ETONOGESTREL
     Indication: CONTRACEPTION
     Dosage: DOSE/FREQUENCY: 3 YEARS; ROUTE: LEFT ARM
     Route: 059
     Dates: start: 20121210

REACTIONS (5)
  - Implant site hypoaesthesia [Unknown]
  - Vomiting [Unknown]
  - Nausea [Unknown]
  - Hypomenorrhoea [Unknown]
  - Mood swings [Unknown]

NARRATIVE: CASE EVENT DATE: 20151001
